FAERS Safety Report 7897875-0 (Version None)
Quarter: 2011Q4

REPORT INFORMATION
  Report Type: 
  Country: None (occurrence: None)
  Receive Date: 20111103
  Receipt Date: 20111021
  Transmission Date: 20120403
  Serious: Yes (Other)
  Sender: FDA-Public Use
  Company Number: ADR-2011-11220

PATIENT
  Sex: Male

DRUGS (2)
  1. LIORESAL [Suspect]
     Indication: CEREBRAL PALSY
     Dosage: UNK MCG, DAILY, INTRATH
     Route: 037
  2. LIORESAL [Suspect]
     Indication: MUSCLE SPASTICITY
     Dosage: UNK MCG, DAILY, INTRATH
     Route: 037

REACTIONS (7)
  - UNDERDOSE [None]
  - MUSCLE SPASTICITY [None]
  - HALLUCINATION, VISUAL [None]
  - ABDOMINAL DISTENSION [None]
  - INFLAMMATION [None]
  - MENTAL DISORDER [None]
  - CONDITION AGGRAVATED [None]
